FAERS Safety Report 8375817 (Version 2)
Quarter: 2013Q1

REPORT INFORMATION
  Report Type: Report from Study
  Country: US (occurrence: US)
  Receive Date: 20120129
  Receipt Date: 20130129
  Transmission Date: 20140127
  Serious: No
  Sender: FDA-Public Use
  Company Number: US-ABBOTT-11P-163-0883399-00

PATIENT
  Age: 70 Year
  Sex: Female

DRUGS (18)
  1. HUMIRA 40 MG/0.8 ML PEN [Suspect]
     Indication: PSORIASIS
     Dates: start: 20111208
  2. HUMIRA 40 MG/0.8 ML PEN [Suspect]
     Dates: start: 20111215
  3. HUMIRA 40 MG/0.8 ML PEN [Suspect]
  4. CRESTOR [Suspect]
     Indication: BLOOD CHOLESTEROL INCREASED
     Route: 048
     Dates: start: 2011
  5. CEPHALEXIN [Suspect]
     Indication: PRODUCT USED FOR UNKNOWN INDICATION
  6. OMEPRAZOLE [Concomitant]
     Indication: GASTROOESOPHAGEAL REFLUX DISEASE
     Route: 048
  7. ENJUVIA [Concomitant]
     Indication: OESTROGEN REPLACEMENT THERAPY
     Route: 048
  8. LORATADINE [Concomitant]
     Indication: HYPERSENSITIVITY
     Route: 048
     Dates: start: 2011
  9. LISINOPRIL [Concomitant]
     Indication: HYPERTENSION
     Route: 048
     Dates: start: 2006
  10. GLIMEPIRIDE [Concomitant]
     Indication: DIABETES MELLITUS
     Route: 048
     Dates: start: 2009
  11. GLIMEPIRIDE [Concomitant]
     Dosage: TWICE A DAY
  12. METANX [Concomitant]
     Indication: VITAMIN B COMPLEX DEFICIENCY
     Dosage: 3/35/2MG
     Route: 048
     Dates: start: 2010
  13. ISOSORBIDE MONO [Concomitant]
     Indication: HYPERTENSION
     Route: 048
     Dates: start: 2011
  14. SYNTHROID [Concomitant]
     Indication: HYPOTHYROIDISM
     Route: 048
     Dates: start: 2011
  15. ASPIRIN [Concomitant]
     Indication: PROPHYLAXIS
     Dosage: LOW DOSE
     Route: 048
  16. TUMS [Concomitant]
     Indication: MINERAL SUPPLEMENTATION
     Route: 048
  17. VITAMIN D3 [Concomitant]
     Indication: VITAMIN SUPPLEMENTATION
  18. LIPITOR [Concomitant]
     Indication: PRODUCT USED FOR UNKNOWN INDICATION

REACTIONS (10)
  - Injection site pain [Not Recovered/Not Resolved]
  - Injection site pain [Not Recovered/Not Resolved]
  - Fatigue [Unknown]
  - Myalgia [Unknown]
  - Renal pain [Unknown]
  - Cystitis [Unknown]
  - Drug hypersensitivity [Unknown]
  - Pruritus [Unknown]
  - Infection [Unknown]
  - Blood glucose abnormal [Unknown]
